FAERS Safety Report 24697229 (Version 1)
Quarter: 2024Q4

REPORT INFORMATION
  Report Type: Spontaneous
  Country: IT (occurrence: IT)
  Receive Date: 20241204
  Receipt Date: 20241204
  Transmission Date: 20250114
  Serious: Yes (Hospitalization)
  Sender: BAXTER
  Company Number: None

PATIENT
  Age: 68 Year
  Sex: Female
  Weight: 60 kg

DRUGS (5)
  1. DOXORUBICIN HYDROCHLORIDE [Suspect]
     Active Substance: DOXORUBICIN HYDROCHLORIDE
     Indication: Ovarian cancer recurrent
     Dosage: 49 MG SOLUTION FOR INJECTION (IN 250 ML OF GLUCOSE)
     Route: 042
     Dates: start: 20241022, end: 20241022
  2. OMEPRAZOLE [Concomitant]
     Active Substance: OMEPRAZOLE
     Indication: Prophylaxis against gastrointestinal ulcer
     Dosage: DOSAGE FORM: 1 DF
     Route: 042
     Dates: start: 20241022, end: 20241022
  3. AKYNZEO [Concomitant]
     Indication: Prophylaxis of nausea and vomiting
     Dosage: DOSAGE FORM: 1 DF
     Route: 042
     Dates: start: 20241022, end: 20241022
  4. METHYLPREDNISOLONE SODIUM SUCCINATE [Concomitant]
     Active Substance: METHYLPREDNISOLONE SODIUM SUCCINATE
     Indication: Hypersensitivity
     Dosage: 40 MG
     Route: 042
     Dates: start: 20241022, end: 20241022
  5. TRIMETON [Concomitant]
     Active Substance: CHLORPHENIRAMINE MALEATE
     Indication: Anaphylaxis prophylaxis
     Dosage: 10 MG
     Route: 042
     Dates: start: 20241022, end: 20241022

REACTIONS (3)
  - Feeling hot [Recovered/Resolved]
  - Erythema [Recovered/Resolved]
  - Larynx irritation [Recovered/Resolved]

NARRATIVE: CASE EVENT DATE: 20241022
